FAERS Safety Report 6686655-X (Version None)
Quarter: 2010Q2

REPORT INFORMATION
  Report Type: 
  Country: None (occurrence: None)
  Receive Date: 20100414
  Receipt Date: 20100330
  Transmission Date: 20101027
  Serious: Yes (Death, Hospitalization, Other)
  Sender: FDA-Public Use
  Company Number: 2009003923

PATIENT
  Age: 54 Year
  Sex: Male

DRUGS (3)
  1. ERLOTINIB (ERLOTINIB) (TABLET) (ERLOTINIB) [Suspect]
     Dosage: (150 MG), ORAL
     Route: 048
  2. CAPECITABINE [Suspect]
     Dosage: (500 MG), ORAL
     Route: 048
     Dates: start: 20090929, end: 20100101
  3. THALOMID [Suspect]
     Indication: DRUG USE FOR UNKNOWN INDICATION
     Dosage: (100 MG, QD), ORAL
     Route: 048

REACTIONS (5)
  - BLOOD ALBUMIN DECREASED [None]
  - CONSTIPATION [None]
  - FULL BLOOD COUNT DECREASED [None]
  - METASTASES TO PANCREAS [None]
  - OEDEMA PERIPHERAL [None]
